FAERS Safety Report 24246918 (Version 7)
Quarter: 2024Q4

REPORT INFORMATION
  Report Type: Spontaneous
  Country: US (occurrence: US)
  Receive Date: 20240826
  Receipt Date: 20241205
  Transmission Date: 20250115
  Serious: No
  Sender: NOVARTIS
  Company Number: US-002147023-NVSC2024US171123

PATIENT
  Sex: Male

DRUGS (1)
  1. COSENTYX [Suspect]
     Active Substance: SECUKINUMAB
     Indication: Product used for unknown indication
     Dosage: UNK, Q2W, 300MG/2ML, ABDOMEN
     Route: 065

REACTIONS (3)
  - Incorrect dose administered by device [Unknown]
  - Device issue [Unknown]
  - Accidental exposure to product [Unknown]
